FAERS Safety Report 26099059 (Version 2)
Quarter: 2025Q4

REPORT INFORMATION
  Report Type: Spontaneous
  Country: EU (occurrence: EU)
  Receive Date: 20251128
  Receipt Date: 20251211
  Transmission Date: 20260118
  Serious: Yes (Other)
  Sender: BAXTER
  Company Number: EU-BAXTER-2025BAX024442

PATIENT
  Age: 82 Year
  Sex: Female

DRUGS (2)
  1. DOXORUBICIN HYDROCHLORIDE [Suspect]
     Active Substance: DOXORUBICIN HYDROCHLORIDE
     Indication: Ovarian cancer metastatic
     Dosage: 75 MG, PARENTERAL
     Route: 065
     Dates: start: 20250922
  2. DOXORUBICIN HYDROCHLORIDE [Suspect]
     Active Substance: DOXORUBICIN HYDROCHLORIDE
     Dosage: 75 MG
     Route: 065

REACTIONS (6)
  - Toxicity to various agents [Recovered/Resolved]
  - Blister [Recovered/Resolved]
  - Gait disturbance [Recovered/Resolved]
  - Activities of daily living decreased [Recovered/Resolved]
  - Peripheral swelling [Unknown]
  - Skin ulcer [Recovered/Resolved]

NARRATIVE: CASE EVENT DATE: 20251023
